FAERS Safety Report 12852045 (Version 1)
Quarter: 2016Q4

REPORT INFORMATION
  Report Type: Spontaneous
  Country: US (occurrence: US)
  Receive Date: 20161017
  Receipt Date: 20161017
  Transmission Date: 20170207
  Serious: Yes (Other)
  Sender: FDA-Public Use
  Company Number: US-SA-2016SA187804

PATIENT
  Age: 43 Year
  Sex: Female

DRUGS (13)
  1. ALIROCUMAB PREFILLED PEN [Concomitant]
     Active Substance: ALIROCUMAB
  2. POTASSIUM [Concomitant]
     Active Substance: POTASSIUM
  3. FLONASE [Concomitant]
     Active Substance: FLUTICASONE PROPIONATE
  4. CRESTOR [Concomitant]
     Active Substance: ROSUVASTATIN CALCIUM
  5. PROZAC [Concomitant]
     Active Substance: FLUOXETINE HYDROCHLORIDE
  6. PLAVIX [Concomitant]
     Active Substance: CLOPIDOGREL BISULFATE
  7. PRALUENT [Suspect]
     Active Substance: ALIROCUMAB
     Indication: TYPE IIA HYPERLIPIDAEMIA
     Route: 058
     Dates: start: 20160816
  8. ZETIA [Concomitant]
     Active Substance: EZETIMIBE
  9. LASIX [Concomitant]
     Active Substance: FUROSEMIDE
  10. ASPIRIN. [Concomitant]
     Active Substance: ASPIRIN
  11. METOPROLOL. [Concomitant]
     Active Substance: METOPROLOL
  12. GABAPENTIN. [Concomitant]
     Active Substance: GABAPENTIN
  13. KLONOPIN [Concomitant]
     Active Substance: CLONAZEPAM

REACTIONS (4)
  - Petechiae [Unknown]
  - Rib fracture [Unknown]
  - Road traffic accident [Unknown]
  - Application site rash [Unknown]

NARRATIVE: CASE EVENT DATE: 2016
